FAERS Safety Report 14061447 (Version 1)
Quarter: 2017Q4

REPORT INFORMATION
  Report Type: Report from Study
  Country: CO (occurrence: CO)
  Receive Date: 20171009
  Receipt Date: 20171009
  Transmission Date: 20180321
  Serious: Yes (Death)
  Sender: FDA-Public Use
  Company Number: CO-ROCHE-2005656

PATIENT
  Age: 77 Year
  Sex: Male

DRUGS (1)
  1. TRASTUZUMAB. [Suspect]
     Active Substance: TRASTUZUMAB
     Indication: GASTRIC CANCER
     Dosage: 400 MG EVERY 21 DAYS
     Route: 042
     Dates: start: 20170315, end: 20170808

REACTIONS (1)
  - Death [Fatal]

NARRATIVE: CASE EVENT DATE: 20170820
